FAERS Safety Report 7434020-X (Version None)
Quarter: 2011Q2

REPORT INFORMATION
  Report Type: 
  Country: None (occurrence: None)
  Receive Date: 20110421
  Receipt Date: 20110421
  Transmission Date: 20111010
  Serious: Yes (Life-Threatening)
  Sender: FDA-Public Use
  Company Number: None

PATIENT
  Age: 60 Year
  Sex: Male
  Weight: 88.2 kg

DRUGS (1)
  1. CEFTRIAXONE [Suspect]
     Indication: PNEUMONIA
     Dates: start: 20110214, end: 20110214

REACTIONS (7)
  - FLUSHING [None]
  - RASH [None]
  - COUGH [None]
  - DYSPNOEA [None]
  - STRIDOR [None]
  - ANAPHYLACTIC REACTION [None]
  - WHEEZING [None]
